FAERS Safety Report 6275558-0 (Version None)
Quarter: 2009Q3

REPORT INFORMATION
  Report Type: 
  Country: None (occurrence: None)
  Receive Date: 20090721
  Receipt Date: 20090709
  Transmission Date: 20100115
  Serious: Yes (Hospitalization, Other)
  Sender: FDA-Public Use
  Company Number: US-ELI_LILLY_AND_COMPANY-US200801003523

PATIENT
  Sex: Male

DRUGS (4)
  1. OLANZAPINE [Suspect]
     Dosage: 10 MG, UNK
     Dates: end: 19991110
  2. OLANZAPINE [Suspect]
     Dosage: 15 MG/KG, UNK
     Dates: start: 19991111, end: 20000518
  3. OLANZAPINE [Suspect]
     Dosage: 10 MG, UNK
     Dates: start: 20000519, end: 20011108
  4. OLANZAPINE [Suspect]
     Dosage: 15 MG, UNK
     Dates: start: 20011109

REACTIONS (5)
  - BLOOD TRIGLYCERIDES INCREASED [None]
  - RED BLOOD CELL COUNT DECREASED [None]
  - ROAD TRAFFIC ACCIDENT [None]
  - SUBARACHNOID HAEMORRHAGE [None]
  - TYPE 2 DIABETES MELLITUS [None]
